FAERS Safety Report 8426296-7 (Version None)
Quarter: 2012Q2

REPORT INFORMATION
  Report Type: 
  Country: None (occurrence: None)
  Receive Date: 20120323
  Receipt Date: 20110519
  Transmission Date: 20120825
  Serious: Yes (Other)
  Sender: FDA-Public Use
  Company Number: 163-21880-11043281

PATIENT
  Age: 46 Year
  Sex: Female

DRUGS (5)
  1. ALLEGRA [Concomitant]
  2. MEPRONE (ATOVAQUONE) [Concomitant]
  3. ACETAMINOPHEN [Concomitant]
  4. REVLIMID [Suspect]
     Indication: MULTIPLE MYELOMA
     Dosage: 10 MG, 1 IN 1 D, PO
     Route: 048
     Dates: start: 20110222, end: 20110301
  5. ACYCLOVIR [Concomitant]

REACTIONS (2)
  - RASH [None]
  - MALAISE [None]
